FAERS Safety Report 5224695-8 (Version None)
Quarter: 2007Q1

REPORT INFORMATION
  Report Type: 
  Country: None (occurrence: None)
  Receive Date: 20070129
  Receipt Date: 20070129
  Transmission Date: 20070707
  Serious: No
  Sender: FDA-Public Use
  Company Number: None

PATIENT
  Age: 53 Year
  Sex: Female
  Weight: 92.9874 kg

DRUGS (6)
  1. TRAVATAN [Suspect]
     Indication: OPEN ANGLE GLAUCOMA
     Dosage: ONE DROP EACH EYE ONCE EYE
     Route: 047
     Dates: start: 20070119
  2. METFORMIN HCL [Concomitant]
  3. ACCUPRIL [Concomitant]
  4. GLUCOTROL [Concomitant]
  5. ZOLOFT [Concomitant]
  6. AMBIEN [Concomitant]

REACTIONS (5)
  - APPLICATION SITE DISCOMFORT [None]
  - APPLICATION SITE IRRITATION [None]
  - EYE DISORDER [None]
  - EYE IRRITATION [None]
  - PHOTOPHOBIA [None]
